FAERS Safety Report 23278884 (Version 1)
Quarter: 2023Q4

REPORT INFORMATION
  Report Type: Spontaneous
  Country: US (occurrence: US)
  Receive Date: 20231208
  Receipt Date: 20231208
  Transmission Date: 20240110
  Serious: No
  Sender: FDA-Public Use
  Company Number: US-SANDOZ-SDZ2023US063200

PATIENT
  Age: 65 Year
  Sex: Female

DRUGS (6)
  1. LINEZOLID [Suspect]
     Active Substance: LINEZOLID
     Indication: Mycobacterium abscessus infection
     Dosage: UNK
     Route: 065
  2. AMIKACIN [Concomitant]
     Active Substance: AMIKACIN
     Indication: Mycobacterium abscessus infection
     Dosage: UNK
     Route: 065
     Dates: start: 20230111, end: 20230406
  3. AZITHROMYCIN [Concomitant]
     Active Substance: AZITHROMYCIN
     Indication: Mycobacterium abscessus infection
     Dosage: UNK
     Route: 065
     Dates: start: 20230111, end: 20231120
  4. IMIPENEM [Concomitant]
     Active Substance: IMIPENEM
     Indication: Mycobacterium abscessus infection
     Dosage: UNK
     Route: 065
     Dates: start: 20230925, end: 20231113
  5. OMADACYCLINE [Concomitant]
     Active Substance: OMADACYCLINE
     Indication: Mycobacterium abscessus infection
     Dosage: UNK
     Route: 065
     Dates: start: 20230111, end: 20230406
  6. SULFAMETHOXAZOLE\TRIMETHOPRIM [Concomitant]
     Active Substance: SULFAMETHOXAZOLE\TRIMETHOPRIM
     Indication: Mycobacterium abscessus infection
     Dosage: UNK
     Route: 065
     Dates: start: 20230406, end: 20231120

REACTIONS (1)
  - Drug intolerance [Unknown]
